FAERS Safety Report 5796473-2 (Version None)
Quarter: 2008Q3

REPORT INFORMATION
  Report Type: 
  Country: None (occurrence: None)
  Receive Date: 20080701
  Receipt Date: 20080623
  Transmission Date: 20090109
  Serious: Yes (Hospitalization)
  Sender: FDA-Public Use
  Company Number: PHHY2008FR11940

PATIENT

DRUGS (2)
  1. TEGRETOL [Suspect]
     Dosage: 1200 MG
     Route: 048
     Dates: start: 20080508, end: 20080603
  2. RISPERDAL [Suspect]
     Dosage: 8 MG
     Route: 048
     Dates: start: 20080501, end: 20080603

REACTIONS (1)
  - NEUTROPENIA [None]
